FAERS Safety Report 9470276 (Version 2)
Quarter: 2013Q3

REPORT INFORMATION
  Report Type: Spontaneous
  Country: DE (occurrence: DE)
  Receive Date: 20130822
  Receipt Date: 20130822
  Transmission Date: 20140515
  Serious: Yes (Disabling, Other)
  Sender: FDA-Public Use
  Company Number: DE-RANBAXY-2006US-02322

PATIENT
  Age: 66 Year
  Sex: Male

DRUGS (2)
  1. GABAPENTIN [Suspect]
     Indication: NEURALGIA
     Dosage: 900 MG, DAILY
     Route: 065
  2. FENTANYL [Concomitant]
     Indication: NEURALGIA
     Dosage: 50 ?G/H EVERY 3 DAYS
     Route: 062

REACTIONS (4)
  - Myoclonus [Recovered/Resolved]
  - Dysarthria [Recovered/Resolved]
  - Mental impairment [Recovered/Resolved]
  - Toxicity to various agents [Recovered/Resolved]
